FAERS Safety Report 6221364-2 (Version None)
Quarter: 2009Q2

REPORT INFORMATION
  Report Type: 
  Country: None (occurrence: None)
  Receive Date: 20090608
  Receipt Date: 20090529
  Transmission Date: 20091009
  Serious: Yes (Other)
  Sender: FDA-Public Use
  Company Number: 2009SP011832

PATIENT
  Age: 34 Year
  Sex: Female

DRUGS (19)
  1. DESLORATADINE [Suspect]
     Indication: DRUG USE FOR UNKNOWN INDICATION
     Dosage: 10 MG; QD; PO
     Route: 048
     Dates: start: 20080718
  2. EFECTIN ER (VENLAFAXINE) (NO PREF. NAME) [Suspect]
     Indication: DRUG USE FOR UNKNOWN INDICATION
     Dosage: 150 MG; QD;, 300 MG;, 375 MG;, 525 MG;, 225 MG;, 150 MG;, 75 MG;, 50 MG;
     Dates: start: 20080804, end: 20080804
  3. EFECTIN ER (VENLAFAXINE) (NO PREF. NAME) [Suspect]
     Indication: DRUG USE FOR UNKNOWN INDICATION
     Dosage: 150 MG; QD;, 300 MG;, 375 MG;, 525 MG;, 225 MG;, 150 MG;, 75 MG;, 50 MG;
     Dates: start: 20080805, end: 20080822
  4. EFECTIN ER (VENLAFAXINE) (NO PREF. NAME) [Suspect]
     Indication: DRUG USE FOR UNKNOWN INDICATION
     Dosage: 150 MG; QD;, 300 MG;, 375 MG;, 525 MG;, 225 MG;, 150 MG;, 75 MG;, 50 MG;
     Dates: start: 20080823, end: 20081125
  5. EFECTIN ER (VENLAFAXINE) (NO PREF. NAME) [Suspect]
     Indication: DRUG USE FOR UNKNOWN INDICATION
     Dosage: 150 MG; QD;, 300 MG;, 375 MG;, 525 MG;, 225 MG;, 150 MG;, 75 MG;, 50 MG;
     Dates: start: 20081126, end: 20090211
  6. EFECTIN ER (VENLAFAXINE) (NO PREF. NAME) [Suspect]
     Indication: DRUG USE FOR UNKNOWN INDICATION
     Dosage: 150 MG; QD;, 300 MG;, 375 MG;, 525 MG;, 225 MG;, 150 MG;, 75 MG;, 50 MG;
     Dates: start: 20090212, end: 20090213
  7. EFECTIN ER (VENLAFAXINE) (NO PREF. NAME) [Suspect]
     Indication: DRUG USE FOR UNKNOWN INDICATION
     Dosage: 150 MG; QD;, 300 MG;, 375 MG;, 525 MG;, 225 MG;, 150 MG;, 75 MG;, 50 MG;
     Dates: start: 20090214, end: 20090216
  8. EFECTIN ER (VENLAFAXINE) (NO PREF. NAME) [Suspect]
     Indication: DRUG USE FOR UNKNOWN INDICATION
     Dosage: 150 MG; QD;, 300 MG;, 375 MG;, 525 MG;, 225 MG;, 150 MG;, 75 MG;, 50 MG;
     Dates: start: 20090217, end: 20090219
  9. EFECTIN ER (VENLAFAXINE) (NO PREF. NAME) [Suspect]
     Indication: DRUG USE FOR UNKNOWN INDICATION
     Dosage: 150 MG; QD;, 300 MG;, 375 MG;, 525 MG;, 225 MG;, 150 MG;, 75 MG;, 50 MG;
     Dates: start: 20090220, end: 20090303
  10. EFECTIN ER (VENLAFAXINE) (NO PREF. NAME) [Suspect]
     Indication: DRUG USE FOR UNKNOWN INDICATION
     Dosage: 150 MG; QD;, 300 MG;, 375 MG;, 525 MG;, 225 MG;, 150 MG;, 75 MG;, 50 MG;
     Dates: start: 20090304, end: 20090305
  11. ABILIFY [Concomitant]
  12. ATARAX [Concomitant]
  13. CYMBALTA [Concomitant]
  14. RISPERDAL [Concomitant]
  15. SEROQUEL [Concomitant]
  16. TRILEPTAL [Concomitant]
  17. TRITTICO [Concomitant]
  18. WELLBUTRIN [Concomitant]
  19. ZELDOX [Concomitant]

REACTIONS (3)
  - FOOD CRAVING [None]
  - INCREASED APPETITE [None]
  - WEIGHT INCREASED [None]
